FAERS Safety Report 4318391-9 (Version None)
Quarter: 2004Q1

REPORT INFORMATION
  Report Type: 
  Country: None (occurrence: None)
  Receive Date: 20040315
  Receipt Date: 20040303
  Transmission Date: 20041129
  Serious: Yes (Other)
  Sender: FDA-Public Use
  Company Number: AT-JNJFOC-20031105292

PATIENT
  Age: 49 Year
  Sex: Female
  Weight: 73.5 kg

DRUGS (7)
  1. HALDOL [Suspect]
     Indication: ALCOHOL WITHDRAWAL SYNDROME
     Dosage: 20 MG, IN 1 DAY, INTRAVENOUS
     Route: 042
     Dates: start: 20030913, end: 20030918
  2. CATAPRES [Suspect]
     Indication: ALCOHOL WITHDRAWAL SYNDROME
     Dosage: 0.67 MG/HR
     Dates: start: 20030916, end: 20030918
  3. MIDAZOLAM HCL [Concomitant]
  4. LOSEC (OMEPRAZOLE) [Concomitant]
  5. AUGMENTIN [Concomitant]
  6. LOVENOX [Concomitant]
  7. BEVITOL (THIAMINE HYDROCHLORIDE) AMPOULES [Concomitant]

REACTIONS (3)
  - ATRIOVENTRICULAR BLOCK [None]
  - BLOOD PRESSURE INCREASED [None]
  - CARDIOMYOPATHY ALCOHOLIC [None]
